FAERS Safety Report 6164348-5 (Version None)
Quarter: 2009Q2

REPORT INFORMATION
  Report Type: 
  Country: None (occurrence: None)
  Receive Date: 20090420
  Receipt Date: 20090402
  Transmission Date: 20091009
  Serious: Yes (Life-Threatening)
  Sender: FDA-Public Use
  Company Number: 8044713

PATIENT
  Age: 24 Year
  Sex: Male

DRUGS (7)
  1. PREDNISOLONE [Suspect]
     Indication: CROHN'S DISEASE
     Dosage: 40 MG /D
  2. AZATHIOPRINE [Suspect]
     Indication: CROHN'S DISEASE
     Dates: start: 20030101
  3. STEROIDS [Suspect]
     Indication: CROHN'S DISEASE
  4. INFLIXIMAB [Suspect]
     Indication: CROHN'S DISEASE
     Dosage: 5 MG/KG
     Dates: start: 20040101
  5. INFLIXIMAB [Suspect]
     Indication: CROHN'S DISEASE
     Dosage: 10 MG/KG
  6. METHOTREXATE [Suspect]
     Indication: CROHN'S DISEASE
     Dates: start: 20060101
  7. METHOTREXATE [Suspect]
     Indication: CROHN'S DISEASE
     Dosage: 25 MG 1/W

REACTIONS (7)
  - CROHN'S DISEASE [None]
  - HYPOTENSION [None]
  - MALAISE [None]
  - MENINGITIS LISTERIA [None]
  - MYALGIA [None]
  - NIGHT SWEATS [None]
  - TACHYCARDIA [None]
